FAERS Safety Report 9979433 (Version 2)
Quarter: 2014Q1

REPORT INFORMATION
  Report Type: Report from Study
  Country: US (occurrence: US)
  Receive Date: 20140306
  Receipt Date: 20140306
  Transmission Date: 20141002
  Serious: Yes (Other)
  Sender: FDA-Public Use
  Company Number: US-ABBVIE-13P-163-1096524-00

PATIENT
  Sex: Female

DRUGS (18)
  1. HUMIRA [Suspect]
     Indication: RHEUMATOID ARTHRITIS
     Route: 058
     Dates: start: 201303
  2. HUMIRA [Suspect]
     Route: 058
     Dates: start: 201305, end: 20131104
  3. COREG [Concomitant]
     Indication: CARDIAC DISORDER
  4. LOSARTAN / HIDROCLOROTIAZIDA [Concomitant]
     Indication: HYPERTENSION
     Dosage: 100 MG/25 MG DAILY
  5. CYMBALTA [Concomitant]
     Indication: DEPRESSION
  6. OXAZEPAM [Concomitant]
     Indication: SLEEP DISORDER THERAPY
     Dosage: AT BEDTIME
  7. AMPICILLIN [Concomitant]
     Indication: PROPHYLAXIS URINARY TRACT INFECTION
     Dosage: 500 MG DAILY AT BEDTIME
  8. FLEXERIL [Concomitant]
     Indication: ARTHRALGIA
     Dosage: AT BEDTIME
  9. DUEXIS [Concomitant]
     Indication: RHEUMATOID ARTHRITIS
     Dosage: 800 MG/26.6 MG 1 TAB TWICE DAILY
  10. VITAMIN D [Concomitant]
     Indication: OSTEOPENIA
  11. MULTIVITAMIN [Concomitant]
     Indication: PRODUCT USED FOR UNKNOWN INDICATION
     Dosage: 2 TABS DAILY
  12. VITAMIN B6 [Concomitant]
     Indication: PRODUCT USED FOR UNKNOWN INDICATION
     Dosage: 50 MG DAILY
  13. VITAMIN B 12 [Concomitant]
     Indication: PRODUCT USED FOR UNKNOWN INDICATION
     Dosage: DAILY
  14. PROBIOTIC [Concomitant]
     Indication: PRODUCT USED FOR UNKNOWN INDICATION
     Dosage: DAILY
  15. GLUCOSAMINE + CHONDROITIN [Concomitant]
     Indication: PRODUCT USED FOR UNKNOWN INDICATION
     Dosage: DAILY
  16. CLARITIN [Concomitant]
     Indication: SEASONAL ALLERGY
  17. ZYRTEC [Concomitant]
     Indication: SEASONAL ALLERGY
  18. CALCIUM CITRATE [Concomitant]
     Indication: OSTEOPENIA
     Dosage: 400 MG DAILY

REACTIONS (3)
  - Urinary tract infection [Recovering/Resolving]
  - Urinary tract infection [Recovered/Resolved]
  - Urinary tract infection [Recovering/Resolving]
